FAERS Safety Report 10769081 (Version 2)
Quarter: 2015Q1

REPORT INFORMATION
  Report Type: Spontaneous
  Country: FI (occurrence: FI)
  Receive Date: 20150206
  Receipt Date: 20150327
  Transmission Date: 20150721
  Serious: Yes (Hospitalization, Other)
  Sender: FDA-Public Use
  Company Number: FI-JNJFOC-20150115343

PATIENT
  Age: 78 Year
  Sex: Female

DRUGS (18)
  1. RISPERDAL [Suspect]
     Active Substance: RISPERIDONE
     Indication: SCHIZOPHRENIA, PARANOID TYPE
     Route: 048
  2. RISPERDAL [Suspect]
     Active Substance: RISPERIDONE
     Indication: SCHIZOPHRENIA, PARANOID TYPE
     Route: 048
  3. CALCICHEW D3 FORTE [Concomitant]
     Active Substance: CALCIUM\CHOLECALCIFEROL
     Route: 065
  4. PRIMASPAN [Concomitant]
     Route: 065
  5. LINATIL [Concomitant]
     Active Substance: ENALAPRIL MALEATE
     Route: 065
  6. THYROXIN [Concomitant]
     Active Substance: LEVOTHYROXINE
     Route: 065
  7. VAGIFEM [Concomitant]
     Active Substance: ESTRADIOL
     Dosage: ACCORDING TO SPECIAL INSTRUCTIONS
     Route: 065
  8. RISPERDAL [Suspect]
     Active Substance: RISPERIDONE
     Indication: SCHIZOPHRENIA, PARANOID TYPE
     Route: 048
     Dates: start: 20150108
  9. NOVORAPID [Concomitant]
     Active Substance: INSULIN ASPART
     Dosage: ACCORDING TO SPECIAL INSTRUCTIONS
     Route: 065
  10. SERENASE [Concomitant]
     Active Substance: HALOPERIDOL
     Indication: ABNORMAL BEHAVIOUR
     Route: 030
  11. FURESIS [Concomitant]
     Active Substance: FUROSEMIDE
     Dosage: IF THE PATIENT GOT SWELLING THEN THE DOSE INCREASED TO 40 MG + 40 MG
     Route: 065
  12. MACROGOL [Concomitant]
     Active Substance: POLYETHYLENE GLYCOLS
     Route: 065
  13. BISOPROLOL [Concomitant]
     Active Substance: BISOPROLOL
     Route: 065
  14. ORMOX [Concomitant]
     Route: 065
  15. GALVUS [Concomitant]
     Active Substance: VILDAGLIPTIN
     Route: 065
  16. TEMESTA [Concomitant]
     Active Substance: LORAZEPAM
     Route: 065
  17. ABILIFY [Concomitant]
     Active Substance: ARIPIPRAZOLE
     Indication: ABNORMAL BEHAVIOUR
     Route: 065
  18. LANTUS [Concomitant]
     Active Substance: INSULIN GLARGINE
     Route: 065

REACTIONS (15)
  - Tardive dyskinesia [Recovered/Resolved]
  - Dysarthria [Recovered/Resolved]
  - Somnolence [Recovered/Resolved]
  - Thrombocytopenia [Recovered/Resolved]
  - Fall [Recovered/Resolved]
  - Head injury [Recovered/Resolved]
  - Hypothermia [Recovered/Resolved]
  - Cardiac failure [Unknown]
  - Neutropenia [Recovered/Resolved]
  - Hospitalisation [Recovered/Resolved]
  - VIIth nerve paralysis [Recovered/Resolved]
  - Disorientation [Recovered/Resolved]
  - General physical health deterioration [Recovered/Resolved]
  - Swollen tongue [Recovering/Resolving]
  - Hypoaesthesia [Recovered/Resolved]

NARRATIVE: CASE EVENT DATE: 201501
